FAERS Safety Report 4641621-0 (Version None)
Quarter: 2005Q2

REPORT INFORMATION
  Report Type: 
  Country: None (occurrence: None)
  Receive Date: 20050420
  Receipt Date: 20050407
  Transmission Date: 20051028
  Serious: Yes (Death)
  Sender: FDA-Public Use
  Company Number: B0377559A

PATIENT
  Age: 75 Year
  Sex: Male

DRUGS (6)
  1. HYCAMTIN [Suspect]
     Indication: BRAIN NEOPLASM
     Dosage: CYCLIC; INTRAVENOUS INFUSI
     Route: 042
  2. PACLITAXEL [Suspect]
     Indication: BRAIN NEOPLASM
     Dosage: CYCLIC; INTRAVENOUS INFUSI
     Route: 042
  3. DEXAMETHASONE [Concomitant]
  4. CIMETIDINE [Concomitant]
  5. DIPHENHYDRAMINE HCL [Concomitant]
  6. NEUPOGEN [Concomitant]

REACTIONS (7)
  - CLOSTRIDIUM COLITIS [None]
  - COMA [None]
  - HYPOTENSION [None]
  - ILEUS [None]
  - INFECTION [None]
  - NEUTROPENIA [None]
  - THROMBOCYTOPENIA [None]
